FAERS Safety Report 10373152 (Version 1)
Quarter: 2014Q3

REPORT INFORMATION
  Report Type: Spontaneous
  Country: US (occurrence: US)
  Receive Date: 20140808
  Receipt Date: 20140808
  Transmission Date: 20150326
  Serious: No
  Sender: FDA-Public Use
  Company Number: US-BRISTOL-MYERS SQUIBB COMPANY-20090395

PATIENT
  Age: 78 Year
  Sex: Male
  Weight: 74.83 kg

DRUGS (14)
  1. OMEPRAZOLE. [Concomitant]
     Active Substance: OMEPRAZOLE
  2. SPRYCEL [Suspect]
     Active Substance: DASATINIB
     Indication: CHRONIC MYELOID LEUKAEMIA
     Route: 048
     Dates: start: 201306
  3. AMLODIPINE [Concomitant]
     Active Substance: AMLODIPINE BESYLATE
  4. LYRICA [Concomitant]
     Active Substance: PREGABALIN
  5. FENTANYL. [Concomitant]
     Active Substance: FENTANYL
  6. ATORVASTATIN [Concomitant]
     Active Substance: ATORVASTATIN
  7. APAP [Concomitant]
     Active Substance: ACETAMINOPHEN
     Dosage: HYDRO/APAP
  8. DRONABINOL. [Concomitant]
     Active Substance: DRONABINOL
  9. CLINDAMYCIN [Concomitant]
     Active Substance: CLINDAMYCIN\CLINDAMYCIN PHOSPHATE
  10. CILOSTAZOL. [Concomitant]
     Active Substance: CILOSTAZOL
  11. MARINOL [Concomitant]
     Active Substance: DRONABINOL
  12. CLONIDINE. [Concomitant]
     Active Substance: CLONIDINE
  13. LOSARTAN [Concomitant]
     Active Substance: LOSARTAN
  14. METAMUCIL [Concomitant]
     Active Substance: PLANTAGO SEED

REACTIONS (4)
  - Dysgeusia [Unknown]
  - Nausea [Unknown]
  - Decreased appetite [Unknown]
  - Weight decreased [Unknown]

NARRATIVE: CASE EVENT DATE: 201306
